FAERS Safety Report 12410740 (Version 1)
Quarter: 2016Q2

REPORT INFORMATION
  Report Type: Spontaneous
  Country: US (occurrence: None)
  Receive Date: 20160526
  Receipt Date: 20160526
  Transmission Date: 20160815
  Serious: No
  Sender: FDA-Public Use
  Company Number: None

PATIENT
  Age: 69 Year
  Sex: Female

DRUGS (1)
  1. OTEZLA [Suspect]
     Active Substance: APREMILAST
     Indication: PSORIATIC ARTHROPATHY
     Route: 048
     Dates: start: 20160427

REACTIONS (5)
  - Muscle spasms [None]
  - Dizziness [None]
  - Headache [None]
  - Diarrhoea [None]
  - Gastrointestinal disorder [None]

NARRATIVE: CASE EVENT DATE: 20160525
